FAERS Safety Report 26211907 (Version 1)
Quarter: 2025Q4

REPORT INFORMATION
  Report Type: Spontaneous
  Country: IN (occurrence: IN)
  Receive Date: 20251230
  Receipt Date: 20251230
  Transmission Date: 20260117
  Serious: Yes (Life-Threatening, Hospitalization, Other)
  Sender: RANBAXY
  Company Number: IN-SUN PHARMACEUTICAL INDUSTRIES LTD-2025R1-541547

PATIENT
  Age: 68 Year
  Sex: Male

DRUGS (1)
  1. BACLOFEN [Suspect]
     Active Substance: BACLOFEN
     Indication: Hiccups
     Dosage: 20 MILLIGRAM, DAILY
     Route: 065

REACTIONS (7)
  - Toxicity to various agents [Unknown]
  - Hypopnoea [Unknown]
  - Coma scale abnormal [Unknown]
  - Disorientation [Unknown]
  - Rebound psychosis [Unknown]
  - Hallucination [Unknown]
  - Delirium [Unknown]
